FAERS Safety Report 5747163-3 (Version None)
Quarter: 2008Q2

REPORT INFORMATION
  Report Type: 
  Country: None (occurrence: None)
  Receive Date: 20080520
  Receipt Date: 20080507
  Transmission Date: 20081010
  Serious: Yes (Life-Threatening, Hospitalization)
  Sender: FDA-Public Use
  Company Number: APP200800361

PATIENT
  Age: 49 Year
  Sex: Male
  Weight: 74.8435 kg

DRUGS (1)
  1. NAROPIN [Suspect]
     Indication: NERVE BLOCK
     Dosage: 40 ML, ONCE, INJECTION
     Dates: start: 20080501, end: 20080501

REACTIONS (6)
  - CARDIAC ARREST [None]
  - GRAND MAL CONVULSION [None]
  - POST PROCEDURAL COMPLICATION [None]
  - SKIN DISCOLOURATION [None]
  - TREMOR [None]
  - VITAL FUNCTIONS ABNORMAL [None]
